FAERS Safety Report 9571036 (Version 1)
Quarter: 2013Q3

REPORT INFORMATION
  Report Type: Spontaneous
  Country: US (occurrence: None)
  Receive Date: 20130927
  Receipt Date: 20130927
  Transmission Date: 20140515
  Serious: Yes (Life-Threatening, Hospitalization)
  Sender: FDA-Public Use
  Company Number: None

PATIENT
  Age: 75 Day
  Sex: Male
  Weight: 95.9 kg

DRUGS (7)
  1. XARELTO [Suspect]
     Indication: THROMBOSIS PROPHYLAXIS
     Route: 048
  2. LISINOPRIL [Concomitant]
  3. ATORVASTATIN [Concomitant]
  4. LASIX [Concomitant]
  5. MECLIZINE [Concomitant]
  6. ACETAMINOPHEN [Suspect]
  7. CARVEDILOL [Concomitant]

REACTIONS (1)
  - Haemorrhage intracranial [None]
